FAERS Safety Report 5947791-6 (Version None)
Quarter: 2008Q4

REPORT INFORMATION
  Report Type: 
  Country: None (occurrence: None)
  Receive Date: 20081111
  Receipt Date: 20081030
  Transmission Date: 20090506
  Serious: Yes (Other)
  Sender: FDA-Public Use
  Company Number: US-JNJFOC-20081100210

PATIENT
  Sex: Female
  Weight: 98.88 kg

DRUGS (11)
  1. TOPAMAX [Suspect]
     Indication: MIGRAINE PROPHYLAXIS
  2. CELEBREX [Concomitant]
     Indication: DRUG USE FOR UNKNOWN INDICATION
  3. PROTONIX [Concomitant]
     Indication: GASTROOESOPHAGEAL REFLUX DISEASE
  4. CLARINEX [Concomitant]
     Indication: MULTIPLE ALLERGIES
  5. DILTIAZEM HCL [Concomitant]
     Indication: CARDIAC DISORDER
  6. SINGULAIR [Concomitant]
     Indication: MULTIPLE ALLERGIES
  7. CYMBALTA [Concomitant]
     Indication: DRUG USE FOR UNKNOWN INDICATION
  8. MIRALAX [Concomitant]
     Indication: DRUG USE FOR UNKNOWN INDICATION
  9. REGLAN [Concomitant]
     Indication: NAUSEA
  10. ENJUVIA [Concomitant]
     Indication: HORMONE REPLACEMENT THERAPY
  11. PROGESTERONE [Concomitant]
     Indication: HORMONE REPLACEMENT THERAPY

REACTIONS (2)
  - NIGHT BLINDNESS [None]
  - VISION BLURRED [None]
